FAERS Safety Report 8614154-4 (Version None)
Quarter: 2012Q3

REPORT INFORMATION
  Report Type: 
  Country: None (occurrence: None)
  Receive Date: 20120823
  Receipt Date: 20120810
  Transmission Date: 20120928
  Serious: No
  Sender: FDA-Public Use
  Company Number: US-BAYER-2012-077403

PATIENT
  Age: 31 Year
  Sex: Female

DRUGS (2)
  1. MIRENA [Suspect]
     Indication: MENORRHAGIA
     Dosage: 20 MCG/24HR, CONT
     Route: 015
     Dates: start: 20120615, end: 20120721
  2. MIRENA [Suspect]
     Indication: CONTRACEPTION

REACTIONS (7)
  - VOMITING [None]
  - NAUSEA [None]
  - HYPERACUSIS [None]
  - PHOTOPHOBIA [None]
  - MIGRAINE [None]
  - PAIN [None]
  - ACNE [None]
